FAERS Safety Report 8771211 (Version 1)
Quarter: 2012Q4

REPORT INFORMATION
  Report Type: 
  Country: DE (occurrence: DE)
  Receive Date: 20120905
  Receipt Date: 20120905
  Transmission Date: 20130627
  Serious: Yes (Death)
  Sender: FDA-Public Use
  Company Number: DE-BAXTER-2012BAX000772

PATIENT
  Age: 27 Year
  Sex: Male
  Weight: 182 kg

DRUGS (2)
  1. ISOFLURAN BAXTER [Suspect]
     Indication: GENERAL ANESTHESIA
  2. SUCCINYLCHOLINE [Suspect]
     Indication: MUSCLE RELAXANT

REACTIONS (1)
  - Hyperthermia malignant [Fatal]
